FAERS Safety Report 8162010-0 (Version None)
Quarter: 2012Q1

REPORT INFORMATION
  Report Type: 
  Country: None (occurrence: None)
  Receive Date: 20120224
  Receipt Date: 20111129
  Transmission Date: 20120608
  Serious: No
  Sender: FDA-Public Use
  Company Number: US-BRISTOL-MYERS SQUIBB COMPANY-16257214

PATIENT
  Age: 68 Year
  Sex: Female
  Weight: 91 kg

DRUGS (3)
  1. LIPITOR [Concomitant]
  2. SYNTHROID [Concomitant]
  3. GLUCOPHAGE [Suspect]
     Indication: TYPE 2 DIABETES MELLITUS
     Dosage: 1 DF: 4 TABS/DAY

REACTIONS (1)
  - PRODUCT ODOUR ABNORMAL [None]
